FAERS Safety Report 5674094-X (Version None)
Quarter: 2008Q1

REPORT INFORMATION
  Report Type: 
  Country: None (occurrence: None)
  Receive Date: 20080320
  Receipt Date: 20080312
  Transmission Date: 20080703
  Serious: Yes (Hospitalization)
  Sender: FDA-Public Use
  Company Number: US-JNJFOC-20080303452

PATIENT
  Sex: Female
  Weight: 65.77 kg

DRUGS (9)
  1. FENTANYL TRANSDERMAL SYSTEM [Suspect]
     Indication: BACK PAIN
     Route: 062
  2. DURAGESIC-100 [Suspect]
     Dosage: 100UG/HR PATCH + 25UG/HR PATCH
     Route: 062
  3. DURAGESIC-100 [Suspect]
     Route: 062
  4. DURAGESIC-100 [Suspect]
     Indication: BACK PAIN
     Route: 062
  5. SYNTHROID [Concomitant]
     Indication: THYROID DISORDER
     Route: 048
  6. MORPHINE [Concomitant]
     Indication: BREAKTHROUGH PAIN
     Route: 048
  7. LORAZEPAM [Concomitant]
     Indication: SLEEP DISORDER
     Route: 048
  8. SOMA [Concomitant]
     Indication: MUSCLE SPASMS
     Route: 048
  9. ZANAFLEX [Concomitant]
     Indication: MUSCLE SPASMS
     Route: 048

REACTIONS (12)
  - ANXIETY [None]
  - BACK PAIN [None]
  - BREAST CANCER [None]
  - CERVIX CARCINOMA [None]
  - CHEST PAIN [None]
  - MYOCARDIAL INFARCTION [None]
  - NIGHT SWEATS [None]
  - POST-TRAUMATIC STRESS DISORDER [None]
  - RESTLESS LEGS SYNDROME [None]
  - THYROID CANCER [None]
  - UTERINE CANCER [None]
  - VOMITING [None]
